FAERS Safety Report 10751632 (Version 2)
Quarter: 2015Q1

REPORT INFORMATION
  Report Type: Report from Study
  Country: BE (occurrence: BE)
  Receive Date: 20150130
  Receipt Date: 20150227
  Transmission Date: 20150721
  Serious: Yes (Hospitalization)
  Sender: FDA-Public Use
  Company Number: BE-ASTRAZENECA-2014SE93854

PATIENT
  Age: 18463 Day
  Sex: Female

DRUGS (29)
  1. AZD2281 [Suspect]
     Active Substance: OLAPARIB
     Indication: OVARIAN CANCER METASTATIC
     Route: 048
     Dates: start: 20140301, end: 20140829
  2. AZD2281 [Suspect]
     Active Substance: OLAPARIB
     Indication: OVARIAN CANCER METASTATIC
     Route: 048
     Dates: start: 20140901, end: 20140922
  3. AZD2281 [Suspect]
     Active Substance: OLAPARIB
     Indication: OVARIAN CANCER METASTATIC
     Route: 048
     Dates: start: 20141120, end: 20141216
  4. IRTACONAZOLE [Suspect]
     Active Substance: ITRACONAZOLE
     Indication: OVARIAN CANCER METASTATIC
     Route: 048
     Dates: start: 20140209, end: 20140215
  5. VENLAFOXIINE [Concomitant]
     Indication: MOOD ALTERED
     Route: 048
  6. DAFALGAN [Concomitant]
     Active Substance: ACETAMINOPHEN
     Indication: PERIPHERAL NERVE INJURY
     Route: 048
     Dates: start: 20140905
  7. AZD2281 [Suspect]
     Active Substance: OLAPARIB
     Indication: OVARIAN CANCER METASTATIC
     Route: 048
     Dates: start: 20141021, end: 20141021
  8. TARGINACT [Concomitant]
     Active Substance: NALOXONE HYDROCHLORIDE\OXYCODONE HYDROCHLORIDE
     Indication: MUSCULOSKELETAL PAIN
     Route: 048
     Dates: start: 20141030
  9. TRADONAL [Concomitant]
     Active Substance: TRAMADOL HYDROCHLORIDE
     Indication: LARGE INTESTINAL OBSTRUCTION
     Route: 042
     Dates: start: 20141109, end: 20141117
  10. AZD2281 [Suspect]
     Active Substance: OLAPARIB
     Indication: OVARIAN CANCER METASTATIC
     Route: 048
     Dates: start: 20141022, end: 20141027
  11. AZD2281 [Suspect]
     Active Substance: OLAPARIB
     Indication: OVARIAN CANCER METASTATIC
     Route: 048
     Dates: start: 20141225, end: 20150106
  12. AZD2281 [Suspect]
     Active Substance: OLAPARIB
     Indication: OVARIAN CANCER METASTATIC
     Route: 048
     Dates: start: 20150119, end: 20150119
  13. NEXIAM [Concomitant]
     Active Substance: ESOMEPRAZOLE
     Indication: DYSPEPSIA
     Route: 048
     Dates: start: 20141123, end: 20141202
  14. AZD2281 [Suspect]
     Active Substance: OLAPARIB
     Indication: OVARIAN CANCER METASTATIC
     Route: 048
     Dates: start: 20140830, end: 20140830
  15. AZD2281 [Suspect]
     Active Substance: OLAPARIB
     Indication: OVARIAN CANCER METASTATIC
     Route: 048
     Dates: start: 20141028, end: 20141028
  16. AZD2281 [Suspect]
     Active Substance: OLAPARIB
     Indication: OVARIAN CANCER METASTATIC
     Route: 048
     Dates: start: 20141108, end: 20141108
  17. AZD2281 [Suspect]
     Active Substance: OLAPARIB
     Indication: OVARIAN CANCER METASTATIC
     Route: 048
     Dates: start: 20141109, end: 20141114
  18. PANTOMED [Concomitant]
     Active Substance: DEXPANTHENOL
     Indication: DYSPEPSIA
     Route: 048
     Dates: start: 20141108
  19. AZD2281 [Suspect]
     Active Substance: OLAPARIB
     Indication: OVARIAN CANCER METASTATIC
     Route: 048
     Dates: start: 20141014, end: 20141014
  20. AZD2281 [Suspect]
     Active Substance: OLAPARIB
     Indication: OVARIAN CANCER METASTATIC
     Route: 048
     Dates: start: 20141029, end: 20141107
  21. SOLU-MEDROL [Concomitant]
     Active Substance: METHYLPREDNISOLONE SODIUM SUCCINATE
     Indication: INTESTINAL OBSTRUCTION
     Route: 042
     Dates: start: 20141109, end: 20141117
  22. AZD2281 [Suspect]
     Active Substance: OLAPARIB
     Indication: OVARIAN CANCER METASTATIC
     Route: 048
     Dates: start: 20140923, end: 20140923
  23. AZD2281 [Suspect]
     Active Substance: OLAPARIB
     Indication: OVARIAN CANCER METASTATIC
     Route: 048
     Dates: start: 20140924, end: 20141013
  24. AZD2281 [Suspect]
     Active Substance: OLAPARIB
     Indication: OVARIAN CANCER METASTATIC
     Route: 048
     Dates: start: 20141015, end: 20141020
  25. REDOMEX [Concomitant]
     Indication: NEUROPATHY PERIPHERAL
     Route: 048
     Dates: start: 20141103
  26. LITICAN [Concomitant]
     Active Substance: ALIZAPRIDE HYDROCHLORIDE
     Indication: VOMITING
     Route: 042
     Dates: start: 20141109, end: 20141117
  27. AZD2281 [Suspect]
     Active Substance: OLAPARIB
     Indication: OVARIAN CANCER METASTATIC
     Route: 048
     Dates: start: 20141224, end: 20141224
  28. AZD2281 [Suspect]
     Active Substance: OLAPARIB
     Indication: OVARIAN CANCER METASTATIC
     Route: 048
     Dates: start: 20150108, end: 20150108
  29. AZD2281 [Suspect]
     Active Substance: OLAPARIB
     Indication: OVARIAN CANCER METASTATIC
     Route: 048
     Dates: start: 20150109, end: 20150118

REACTIONS (2)
  - Large intestinal obstruction [Recovered/Resolved]
  - Staphylococcal bacteraemia [Recovered/Resolved]

NARRATIVE: CASE EVENT DATE: 20141122
